FAERS Safety Report 23838545 (Version 2)
Quarter: 2024Q2

REPORT INFORMATION
  Report Type: Spontaneous
  Country: DE (occurrence: DE)
  Receive Date: 20240509
  Receipt Date: 20240517
  Transmission Date: 20240716
  Serious: Yes (Other)
  Sender: FDA-Public Use
  Company Number: DE-EXELTIS PHARMACEUTICAL HOLDING, S.L.-2311DE07970

PATIENT
  Sex: Female
  Weight: 53 kg

DRUGS (5)
  1. PROGESTERONE [Suspect]
     Active Substance: PROGESTERONE
     Indication: Menopausal symptoms
     Dosage: 100 MILLIGRAM, QD
     Route: 048
     Dates: start: 20220822, end: 20231115
  2. PROGESTERONE [Suspect]
     Active Substance: PROGESTERONE
     Dosage: 100 MILLIGRAM, IN THE EVENING
     Route: 067
     Dates: start: 20231115, end: 2024
  3. LERCANIDIPINE [Concomitant]
     Active Substance: LERCANIDIPINE
     Dosage: UNK
     Dates: start: 202307, end: 202307
  4. ESTRADIOL VALERATE [Concomitant]
     Active Substance: ESTRADIOL VALERATE
     Dosage: 2 STROKES
     Route: 003
     Dates: start: 20220822
  5. RAMIPRIL [Concomitant]
     Active Substance: RAMIPRIL
     Indication: Hypertension
     Dosage: 1.25 MILLIGRAM, AT NIGHT, PRN

REACTIONS (14)
  - Cheilitis [Recovering/Resolving]
  - Hair growth abnormal [Recovering/Resolving]
  - Skin disorder [Recovering/Resolving]
  - Product use issue [Unknown]
  - Fatigue [Unknown]
  - Oral herpes [Recovering/Resolving]
  - Dermatitis atopic [Recovered/Resolved]
  - Weight decreased [Unknown]
  - Hypertensive crisis [Unknown]
  - Intermenstrual bleeding [Recovered/Resolved]
  - Eye disorder [Recovered/Resolved]
  - Product use issue [Unknown]
  - Loss of libido [Unknown]
  - Product dose omission issue [Unknown]

NARRATIVE: CASE EVENT DATE: 20220101
